FAERS Safety Report 9564853 (Version 2)
Quarter: 2013Q4

REPORT INFORMATION
  Report Type: Report from Study
  Country: AR (occurrence: AR)
  Receive Date: 20130930
  Receipt Date: 20131006
  Transmission Date: 20140711
  Serious: Yes (Death)
  Sender: FDA-Public Use
  Company Number: PHHY2013AR108253

PATIENT
  Age: 53 Year
  Sex: Male

DRUGS (1)
  1. EXFORGE [Suspect]
     Indication: HYPERTENSION
     Dosage: 1 DF, (160 MG VALS / 5 MG AMLO) DAILY
     Route: 048

REACTIONS (1)
  - Colon cancer [Fatal]
